FAERS Safety Report 10694944 (Version 1)
Quarter: 2015Q1

REPORT INFORMATION
  Report Type: Spontaneous
  Country: US (occurrence: None)
  Receive Date: 20150106
  Receipt Date: 20150106
  Transmission Date: 20150721
  Serious: Yes (Other)
  Sender: FDA-Public Use
  Company Number: None

PATIENT
  Age: 11 Year
  Sex: Female

DRUGS (1)
  1. TAMIFLU [Suspect]
     Active Substance: OSELTAMIVIR PHOSPHATE
     Dates: start: 20141202, end: 20150103

REACTIONS (10)
  - Agitation [None]
  - Incoherent [None]
  - Heart rate increased [None]
  - Disorientation [None]
  - Crying [None]
  - Sleep disorder [None]
  - Restlessness [None]
  - Sleep terror [None]
  - Tremor [None]
  - Emotional disorder [None]

NARRATIVE: CASE EVENT DATE: 20141203
